FAERS Safety Report 6979052-0 (Version None)
Quarter: 2010Q3

REPORT INFORMATION
  Report Type: 
  Country: None (occurrence: None)
  Receive Date: 20100908
  Receipt Date: 20100826
  Transmission Date: 20110219
  Serious: Yes (Other)
  Sender: FDA-Public Use
  Company Number: 2010SP002426

PATIENT
  Age: 73 Year
  Sex: Female

DRUGS (7)
  1. XOPENEX [Suspect]
     Indication: CHRONIC OBSTRUCTIVE PULMONARY DISEASE
     Dosage: 1.25 MG/3ML; TID; INHALATION
     Route: 055
     Dates: start: 20030101, end: 20100801
  2. XOPENEX [Suspect]
     Indication: CHRONIC OBSTRUCTIVE PULMONARY DISEASE
     Dosage: 1.25 MG/3ML; TID; INHALATION
     Route: 055
     Dates: start: 20100801, end: 20100816
  3. XOPENEX [Suspect]
     Indication: CHRONIC OBSTRUCTIVE PULMONARY DISEASE
     Dosage: 1.25 MG/3ML; TID; INHALATION
     Route: 055
     Dates: start: 20100817
  4. XOPENEX [Suspect]
  5. XOPENEX [Suspect]
  6. COMBIVENT [Concomitant]
  7. OXYGEN [Concomitant]

REACTIONS (4)
  - BRONCHITIS [None]
  - LUNG NEOPLASM MALIGNANT [None]
  - OROPHARYNGEAL PAIN [None]
  - PRODUCT ODOUR ABNORMAL [None]
